FAERS Safety Report 12982088 (Version 1)
Quarter: 2016Q4

REPORT INFORMATION
  Report Type: Spontaneous
  Country: GB (occurrence: GB)
  Receive Date: 20161129
  Receipt Date: 20161129
  Transmission Date: 20170207
  Serious: Yes (Hospitalization)
  Sender: FDA-Public Use
  Company Number: PHFR2016GB009305

PATIENT
  Age: 27 Year
  Sex: Female

DRUGS (5)
  1. NOREPINEPHRINE [Concomitant]
     Active Substance: NOREPINEPHRINE\NOREPINEPHRINE BITARTRATE
     Indication: INTRACRANIAL PRESSURE INCREASED
     Dosage: UNK
     Route: 065
     Dates: end: 20161001
  2. ELTROMBOPAG [Suspect]
     Active Substance: ELTROMBOPAG
     Dosage: 50 MG, QD
     Route: 065
     Dates: start: 20160930, end: 20161003
  3. ELTROMBOPAG [Suspect]
     Active Substance: ELTROMBOPAG
     Indication: IMMUNE THROMBOCYTOPENIC PURPURA
     Dosage: 50 MG, QD
     Route: 065
     Dates: start: 20160817, end: 20160923
  4. THIOPENTAL [Concomitant]
     Active Substance: THIOPENTAL
     Indication: INTRACRANIAL PRESSURE INCREASED
     Dosage: UNK
     Route: 065
     Dates: end: 20160925
  5. MICROGINON [Suspect]
     Active Substance: ETHINYL ESTRADIOL\LEVONORGESTREL
     Indication: IMMUNE THROMBOCYTOPENIC PURPURA
     Route: 065

REACTIONS (19)
  - Dysarthria [Unknown]
  - Platelet count increased [Unknown]
  - Platelet count decreased [Recovered/Resolved]
  - Cerebral infarction [Unknown]
  - Hemiparesis [Not Recovered/Not Resolved]
  - Feeling abnormal [Unknown]
  - Transverse sinus thrombosis [Unknown]
  - Influenza like illness [Unknown]
  - Somnolence [Unknown]
  - Anosognosia [Unknown]
  - Vomiting [Not Recovered/Not Resolved]
  - Vasogenic cerebral oedema [Unknown]
  - Hypocoagulable state [Unknown]
  - Haemorrhage [Recovering/Resolving]
  - Hemianopia homonymous [Not Recovered/Not Resolved]
  - Coma [Unknown]
  - Epilepsy [Recovering/Resolving]
  - Cerebral venous thrombosis [Unknown]
  - Headache [Not Recovered/Not Resolved]

NARRATIVE: CASE EVENT DATE: 20160817
